FAERS Safety Report 5510740-9 (Version None)
Quarter: 2007Q4

REPORT INFORMATION
  Report Type: 
  Country: None (occurrence: None)
  Receive Date: 20071108
  Receipt Date: 20071031
  Transmission Date: 20080405
  Serious: Yes (Disabling)
  Sender: FDA-Public Use
  Company Number: B0409631A

PATIENT
  Age: 77 Year
  Sex: Female
  Weight: 87 kg

DRUGS (10)
  1. PAROXETINE HCL [Suspect]
     Dosage: 20MG PER DAY
     Route: 048
     Dates: start: 20031001, end: 20051015
  2. IMOVANE [Concomitant]
     Dosage: 3.75MG PER DAY
     Route: 065
     Dates: start: 20031001
  3. AMARYL [Concomitant]
  4. INSULINE [Concomitant]
  5. ZESTRIL [Concomitant]
  6. AMLOR [Concomitant]
  7. FENOFIBRATE [Concomitant]
  8. ASPIRIN [Concomitant]
  9. LYSANXIA [Concomitant]
  10. METFORMIN HCL [Concomitant]

REACTIONS (6)
  - COGWHEEL RIGIDITY [None]
  - HYPERTONIA [None]
  - HYPOTONIA [None]
  - MOBILITY DECREASED [None]
  - PARKINSONISM [None]
  - TREMOR [None]
